FAERS Safety Report 22391337 (Version 1)
Quarter: 2023Q2

REPORT INFORMATION
  Report Type: Spontaneous
  Country: US (occurrence: US)
  Receive Date: 20230601
  Receipt Date: 20230601
  Transmission Date: 20230722
  Serious: No
  Sender: FDA-Public Use
  Company Number: US-SA-SAC20230529000379

PATIENT
  Age: 20 Year
  Sex: Female

DRUGS (4)
  1. CABLIVI [Suspect]
     Active Substance: CAPLACIZUMAB-YHDP
     Indication: Thrombocytopenia
     Dosage: 11 MG, QD
     Route: 058
     Dates: start: 20230516
  2. CABLIVI [Suspect]
     Active Substance: CAPLACIZUMAB-YHDP
     Indication: Thrombocytopenia
     Dosage: 11 MG, QD
     Route: 058
     Dates: start: 20230516
  3. CABLIVI [Suspect]
     Active Substance: CAPLACIZUMAB-YHDP
     Indication: Thrombocytopenia
     Dosage: 11 MG, QD
     Route: 058
     Dates: start: 20230516
  4. CABLIVI [Suspect]
     Active Substance: CAPLACIZUMAB-YHDP
     Indication: Thrombocytopenia
     Dosage: 11 MG, QD
     Route: 058
     Dates: start: 20230516

REACTIONS (3)
  - Transfusion [Unknown]
  - Epistaxis [Unknown]
  - Product use in unapproved indication [Unknown]

NARRATIVE: CASE EVENT DATE: 20230516
